FAERS Safety Report 16536918 (Version 3)
Quarter: 2019Q3

REPORT INFORMATION
  Report Type: Report from Study
  Country: US (occurrence: US)
  Receive Date: 20190707
  Receipt Date: 20190730
  Transmission Date: 20191004
  Serious: Yes (Other)
  Sender: FDA-Public Use
  Company Number: US-BEH-2019101723

PATIENT
  Age: 25 Year
  Sex: Male
  Weight: 98 kg

DRUGS (2)
  1. BERINERT [Suspect]
     Active Substance: HUMAN C1-ESTERASE INHIBITOR
     Indication: HEREDITARY ANGIOEDEMA
     Dosage: 500 INTERNATIONAL UNIT, PRN
     Route: 065
  2. BERINERT [Suspect]
     Active Substance: HUMAN C1-ESTERASE INHIBITOR
     Indication: HEREDITARY ANGIOEDEMA
     Dosage: 500 INTERNATIONAL UNIT, PRN
     Route: 065

REACTIONS (4)
  - Treatment noncompliance [Unknown]
  - Hereditary angioedema [Unknown]
  - Product supply issue [Unknown]
  - Stress [Unknown]

NARRATIVE: CASE EVENT DATE: 201906
